FAERS Safety Report 6519704-X (Version None)
Quarter: 2009Q4

REPORT INFORMATION
  Report Type: 
  Country: None (occurrence: None)
  Receive Date: 20091228
  Receipt Date: 20091216
  Transmission Date: 20100525
  Serious: Yes (Hospitalization)
  Sender: FDA-Public Use
  Company Number: FR-PFIZER INC-2009310879

PATIENT
  Age: 79 Year
  Sex: Male

DRUGS (1)
  1. ZYVOXID [Suspect]
     Indication: ABSCESS
     Dosage: 600 MG, 2X/DAY

REACTIONS (2)
  - DEPRESSION [None]
  - VOMITING [None]
